FAERS Safety Report 11249560 (Version 1)
Quarter: 2015Q3

REPORT INFORMATION
  Report Type: Spontaneous
  Country: US (occurrence: US)
  Receive Date: 20150708
  Receipt Date: 20150708
  Transmission Date: 20151125
  Serious: No
  Sender: FDA-Public Use
  Company Number: US-ELI_LILLY_AND_COMPANY-US201006004865

PATIENT
  Age: 52 Year
  Sex: Female
  Weight: 71.2 kg

DRUGS (5)
  1. DEXAMETHASONE. [Concomitant]
     Active Substance: DEXAMETHASONE
     Dates: start: 20090629
  2. ALIMTA [Suspect]
     Active Substance: PEMETREXED DISODIUM
     Indication: NON-SMALL CELL LUNG CANCER STAGE 0
     Dosage: 425 MG, UNK
  3. ZOFRAN [Concomitant]
     Active Substance: ONDANSETRON HYDROCHLORIDE
     Dates: start: 20090929
  4. ACTIVASE [Concomitant]
     Active Substance: ALTEPLASE
     Indication: PROPHYLAXIS
     Dosage: 2 MG, UNK
     Route: 042
     Dates: start: 20100602
  5. VITAMIN B12 [Concomitant]
     Active Substance: CYANOCOBALAMIN
     Dosage: 1000 UG, UNK
     Route: 030
     Dates: start: 20090811

REACTIONS (2)
  - Neutropenia [Recovered/Resolved]
  - Dizziness [Recovered/Resolved]

NARRATIVE: CASE EVENT DATE: 20090929
